FAERS Safety Report 19577189 (Version 2)
Quarter: 2021Q3

REPORT INFORMATION
  Report Type: Report from Study
  Country: DE (occurrence: DE)
  Receive Date: 20210719
  Receipt Date: 20210824
  Transmission Date: 20211014
  Serious: Yes (Other)
  Sender: FDA-Public Use
  Company Number: DE-TAKEDA-2021TUS043709

PATIENT
  Age: 49 Year
  Sex: Female

DRUGS (12)
  1. TEDUGLUTIDE [Suspect]
     Active Substance: TEDUGLUTIDE
     Dosage: 1.6 MILLIGRAM, QD
     Route: 065
     Dates: start: 20171130
  2. JONOSTERIL [Concomitant]
     Indication: NUTRITIONAL SUPPLEMENTATION
     Dosage: 1 LITER, QD
     Route: 042
     Dates: start: 20200522
  3. TEDUGLUTIDE [Suspect]
     Active Substance: TEDUGLUTIDE
     Indication: SHORT-BOWEL SYNDROME
     Dosage: 1.55 MILLIGRAM, QD
     Route: 065
     Dates: start: 20171026, end: 20171129
  4. TEDUGLUTIDE [Suspect]
     Active Substance: TEDUGLUTIDE
     Dosage: 1.6 MILLIGRAM, QD
     Route: 065
     Dates: start: 20171130
  5. KCL 7.45% BRAUN [Concomitant]
     Indication: NUTRITIONAL SUPPLEMENTATION
     Dosage: 20 MILLILITER, TID
     Route: 042
     Dates: start: 20200522
  6. NUTRIFLEX LIPID PERI [Concomitant]
     Indication: NUTRITIONAL SUPPLEMENTATION
     Dosage: 1.86 LITER, QD
     Route: 042
     Dates: start: 20200522
  7. TEDUGLUTIDE [Suspect]
     Active Substance: TEDUGLUTIDE
     Indication: SHORT-BOWEL SYNDROME
     Dosage: 1.55 MILLIGRAM, QD
     Route: 065
     Dates: start: 20171026, end: 20171129
  8. TEDUGLUTIDE [Suspect]
     Active Substance: TEDUGLUTIDE
     Indication: SHORT-BOWEL SYNDROME
     Dosage: 1.55 MILLIGRAM, QD
     Route: 065
     Dates: start: 20171026, end: 20171129
  9. TEDUGLUTIDE [Suspect]
     Active Substance: TEDUGLUTIDE
     Dosage: 1.6 MILLIGRAM, QD
     Route: 065
     Dates: start: 20171130
  10. TEDUGLUTIDE [Suspect]
     Active Substance: TEDUGLUTIDE
     Indication: SHORT-BOWEL SYNDROME
     Dosage: 1.55 MILLIGRAM, QD
     Route: 065
     Dates: start: 20171026, end: 20171129
  11. TEDUGLUTIDE [Suspect]
     Active Substance: TEDUGLUTIDE
     Dosage: 1.6 MILLIGRAM, QD
     Route: 065
     Dates: start: 20171130
  12. ADDAVEN [Concomitant]
     Active Substance: ELECTROLYTES NOS\MINERALS
     Indication: NUTRITIONAL SUPPLEMENTATION
     Dosage: 10 MILLILITER, QD
     Route: 042
     Dates: start: 20200522

REACTIONS (2)
  - Device related infection [Recovered/Resolved]
  - Wound infection [Recovered/Resolved]

NARRATIVE: CASE EVENT DATE: 20190531
